FAERS Safety Report 25754743 (Version 3)
Quarter: 2025Q3

REPORT INFORMATION
  Report Type: Spontaneous
  Country: US (occurrence: US)
  Receive Date: 20250903
  Receipt Date: 20250926
  Transmission Date: 20251021
  Serious: No
  Sender: JOHNSON AND JOHNSON
  Company Number: US-JNJFOC-20250901851

PATIENT
  Age: 46 Year
  Sex: Female

DRUGS (5)
  1. TREMFYA [Suspect]
     Active Substance: GUSELKUMAB
     Indication: Psoriatic arthropathy
     Route: 065
     Dates: start: 202506, end: 20250901
  2. TREMFYA [Suspect]
     Active Substance: GUSELKUMAB
  3. METOPROLOL [Concomitant]
     Active Substance: METOPROLOL
     Indication: Product used for unknown indication
  4. CEFIXIME [Concomitant]
     Active Substance: CEFIXIME
     Indication: Myalgia
  5. DICLOFENAC [Concomitant]
     Active Substance: DICLOFENAC
     Indication: Pain

REACTIONS (2)
  - Device issue [Unknown]
  - Incorrect dose administered [Unknown]

NARRATIVE: CASE EVENT DATE: 20250901
